FAERS Safety Report 13487272 (Version 2)
Quarter: 2017Q2

REPORT INFORMATION
  Report Type: Spontaneous
  Country: US (occurrence: US)
  Receive Date: 20170426
  Receipt Date: 20170606
  Transmission Date: 20170830
  Serious: Yes (Other)
  Sender: FDA-Public Use
  Company Number: US-PFIZER INC-2017175407

PATIENT
  Age: 62 Year
  Sex: Female

DRUGS (7)
  1. CHANTIX [Suspect]
     Active Substance: VARENICLINE TARTRATE
     Dosage: 1 MG, 1X/DAY
     Route: 048
     Dates: start: 2017
  2. CHANTIX [Suspect]
     Active Substance: VARENICLINE TARTRATE
     Indication: SMOKING CESSATION THERAPY
     Dosage: 1 MG, 2X/DAY
     Route: 048
     Dates: start: 2016, end: 201611
  3. PROMETHAZINE [Concomitant]
     Active Substance: PROMETHAZINE\PROMETHAZINE HYDROCHLORIDE
     Dosage: 25 MG, 1X/DAY
     Dates: start: 20141118
  4. CLINDAMYCIN. [Concomitant]
     Active Substance: CLINDAMYCIN
     Dosage: 300 MG, 2X/DAY
     Dates: start: 20140820
  5. LEVOTHYROXINE. [Concomitant]
     Active Substance: LEVOTHYROXINE
     Dosage: 200 UG, 1X/DAY
     Dates: start: 20160323
  6. CHANTIX [Suspect]
     Active Substance: VARENICLINE TARTRATE
     Dosage: 1 MG, 1X/DAY
     Route: 048
     Dates: start: 201611
  7. CHANTIX [Suspect]
     Active Substance: VARENICLINE TARTRATE
     Dosage: 1 MG, 2X/DAY
     Route: 048
     Dates: start: 20161130, end: 2017

REACTIONS (6)
  - Crying [Unknown]
  - Intentional product use issue [Unknown]
  - Emotional disorder [Unknown]
  - Anxiety [Unknown]
  - Glaucoma [Unknown]
  - Dependence [Unknown]

NARRATIVE: CASE EVENT DATE: 201611
